FAERS Safety Report 9782714 (Version 1)
Quarter: 2013Q4

REPORT INFORMATION
  Report Type: Report from Study
  Country: US (occurrence: US)
  Receive Date: 20131226
  Receipt Date: 20131226
  Transmission Date: 20140711
  Serious: Yes (Hospitalization)
  Sender: FDA-Public Use
  Company Number: PHEH2013US026367

PATIENT
  Age: 9 Year
  Sex: Male
  Weight: 33.8 kg

DRUGS (10)
  1. TOBI PODHALER [Suspect]
     Indication: CYSTIC FIBROSIS
     Dosage: 112 MG, BID
     Route: 055
     Dates: start: 201303
  2. PULMOZYME [Concomitant]
     Dosage: UNK
  3. ALBUTEROL [Concomitant]
     Dosage: UNK
  4. ADVAIR [Concomitant]
     Dosage: UNK
  5. SODIUM CHLORIDE [Concomitant]
     Dosage: UNK
  6. CREON [Concomitant]
     Dosage: UNK
  7. URSODIOL [Concomitant]
     Dosage: UNK
  8. MULTIVIT//VITAMINS NOS [Concomitant]
     Dosage: UNK
  9. AQUADEKS [Concomitant]
     Dosage: UNK
  10. MIRALAX [Concomitant]
     Dosage: UNK

REACTIONS (1)
  - Infective exacerbation of bronchiectasis [Unknown]
